FAERS Safety Report 9555988 (Version 2)
Quarter: 2013Q4

REPORT INFORMATION
  Report Type: Spontaneous
  Country: DE (occurrence: DE)
  Receive Date: 20130926
  Receipt Date: 20131001
  Transmission Date: 20140711
  Serious: Yes (Hospitalization)
  Sender: FDA-Public Use
  Company Number: DE-AMGEN-DEUSP2013067355

PATIENT
  Age: 54 Year
  Sex: Female
  Weight: 93 kg

DRUGS (8)
  1. NEULASTA [Suspect]
     Indication: PRODUCT USED FOR UNKNOWN INDICATION
     Dosage: 6 MG, 1 X 1, UNK
     Route: 058
     Dates: start: 20130829, end: 20130829
  2. DOCETAXEL [Suspect]
     Indication: PRODUCT USED FOR UNKNOWN INDICATION
     Dosage: 128 MG, ALL 14 DAYS
     Route: 042
     Dates: start: 20130626
  3. EPIRUBICIN [Concomitant]
     Dosage: 154 MG, ALL 14 DAYS
     Route: 042
     Dates: start: 20130626
  4. CYCLOPHOSPHAMIDE [Concomitant]
     Dosage: 1025 MG, ALL 14 DAYS
     Route: 042
     Dates: start: 20130626
  5. LEVEMIR [Concomitant]
     Dosage: 180 UNK, UNK
  6. NOVORAPID [Concomitant]
     Dosage: 14 UNK, UNK
  7. EUCREAS [Concomitant]
     Dosage: 50/1000 MG
  8. TINZAPARIN [Concomitant]
     Dosage: 3500 IE

REACTIONS (3)
  - Cough [Recovered/Resolved]
  - Pyrexia [Recovered/Resolved]
  - Leukocytosis [Recovered/Resolved]
